FAERS Safety Report 9263051 (Version 1)
Quarter: 2013Q2

REPORT INFORMATION
  Report Type: Spontaneous
  Country: US (occurrence: None)
  Receive Date: 20130426
  Receipt Date: 20130426
  Transmission Date: 20140414
  Serious: Yes (Other)
  Sender: FDA-Public Use
  Company Number: None

PATIENT
  Age: 47 Year
  Sex: Female
  Weight: 67.13 kg

DRUGS (1)
  1. CYMBALTA 30 MG LILLY [Suspect]
     Indication: FIBROMYALGIA
     Route: 048
     Dates: start: 20100419, end: 20130425

REACTIONS (14)
  - Paraesthesia [None]
  - Confusional state [None]
  - Memory impairment [None]
  - Anxiety [None]
  - Insomnia [None]
  - Abnormal behaviour [None]
  - Feeling abnormal [None]
  - Impaired work ability [None]
  - Dysstasia [None]
  - Abnormal dreams [None]
  - Somnolence [None]
  - Depression [None]
  - Quality of life decreased [None]
  - Feeling of despair [None]
